FAERS Safety Report 8825496 (Version 1)
Quarter: 2012Q4

REPORT INFORMATION
  Report Type: 
  Country: CN (occurrence: CN)
  Receive Date: 20121004
  Receipt Date: 20121004
  Transmission Date: 20130627
  Serious: Yes (Other)
  Sender: FDA-Public Use
  Company Number: CN-JNJFOC-20120912708

PATIENT
  Age: 28 None
  Sex: Female

DRUGS (10)
  1. TYLENOL COLD [Suspect]
     Indication: INFLAMMATION
     Route: 048
     Dates: start: 20100819, end: 20100819
  2. TYLENOL COLD [Suspect]
     Indication: INFLAMMATION
     Route: 048
     Dates: start: 20100818, end: 20100818
  3. TYLENOL COLD [Suspect]
     Indication: PYREXIA
     Route: 048
     Dates: start: 20100819, end: 20100819
  4. TYLENOL COLD [Suspect]
     Indication: PYREXIA
     Route: 048
     Dates: start: 20100818, end: 20100818
  5. TYLENOL COLD [Suspect]
     Indication: NASOPHARYNGITIS
     Route: 048
     Dates: start: 20100819, end: 20100819
  6. TYLENOL COLD [Suspect]
     Indication: NASOPHARYNGITIS
     Route: 048
     Dates: start: 20100818, end: 20100818
  7. CEFACLOR [Suspect]
     Indication: INFLAMMATION
     Route: 065
     Dates: start: 20100818
  8. CEFACLOR [Suspect]
     Indication: PYREXIA
     Route: 065
     Dates: start: 20100818
  9. AN UNKNOWN MEDICATION [Suspect]
     Indication: INFLAMMATION
     Route: 065
     Dates: start: 20100818
  10. AN UNKNOWN MEDICATION [Suspect]
     Indication: PYREXIA
     Route: 065
     Dates: start: 20100818

REACTIONS (4)
  - Hepatic function abnormal [Recovering/Resolving]
  - Abdominal pain upper [Unknown]
  - Aspartate aminotransferase increased [None]
  - Alanine aminotransferase increased [None]
